FAERS Safety Report 14856700 (Version 2)
Quarter: 2019Q2

REPORT INFORMATION
  Report Type: Spontaneous
  Country: US (occurrence: US)
  Receive Date: 20180507
  Receipt Date: 20190509
  Transmission Date: 20190711
  Serious: No
  Sender: FDA-Public Use
  Company Number: US-ROCHE-2011308

PATIENT
  Age: 74 Year
  Sex: Male

DRUGS (21)
  1. ESBRIET [Suspect]
     Active Substance: PIRFENIDONE
     Route: 048
     Dates: start: 20171119
  2. HYDROMET (HOMATROPINE METHYLBROMIDE/HYDROCODONE BITARTRATE) [Concomitant]
     Dosage: 5-1.5 MG/5ML; AS NEEDED
     Route: 048
     Dates: start: 20171030
  3. PANTOPRAZOLE [Concomitant]
     Active Substance: PANTOPRAZOLE
     Route: 048
  4. ESBRIET [Suspect]
     Active Substance: PIRFENIDONE
     Indication: IDIOPATHIC PULMONARY FIBROSIS
     Route: 048
     Dates: start: 20161222
  5. FISH OIL [Concomitant]
     Active Substance: FISH OIL
     Route: 048
  6. ESBRIET [Suspect]
     Active Substance: PIRFENIDONE
     Route: 048
     Dates: start: 20180313
  7. OXYGEN. [Concomitant]
     Active Substance: OXYGEN
     Dosage: 2 LPM
     Route: 065
     Dates: start: 20171030
  8. ZOFRAN [Concomitant]
     Active Substance: ONDANSETRON HYDROCHLORIDE
     Dosage: AS NEEDED
     Route: 048
     Dates: start: 20161219
  9. METOPROLOL TARTRATE. [Concomitant]
     Active Substance: METOPROLOL TARTRATE
  10. IMODIUM [Concomitant]
     Active Substance: LOPERAMIDE HYDROCHLORIDE
     Indication: DIARRHOEA
  11. FLUTICASONE. [Concomitant]
     Active Substance: FLUTICASONE
     Route: 055
  12. ESBRIET [Suspect]
     Active Substance: PIRFENIDONE
     Route: 048
     Dates: start: 20171106
  13. GABAPENTIN. [Concomitant]
     Active Substance: GABAPENTIN
     Dosage: BEDTIME
     Route: 048
     Dates: start: 20170626
  14. PRAVASTATIN. [Concomitant]
     Active Substance: PRAVASTATIN
     Route: 048
  15. VITAMIN D3 [Concomitant]
     Active Substance: CHOLECALCIFEROL
     Dosage: 5000 UNIT
     Route: 048
  16. BREO ELLIPTA [Concomitant]
     Active Substance: FLUTICASONE FUROATE\VILANTEROL TRIFENATATE
     Dosage: EACH DAY: 200-25 MCG/DOSE
     Route: 055
  17. CAPA [Concomitant]
     Dosage: 11 CM; NIGHTLY
     Route: 065
  18. GLIMEPIRIDE. [Concomitant]
     Active Substance: GLIMEPIRIDE
     Route: 048
  19. ASPIRIN [ACETYLSALICYLIC ACID] [Concomitant]
     Active Substance: ASPIRIN
     Route: 048
  20. PROAIR HFA [Concomitant]
     Active Substance: ALBUTEROL SULFATE
     Dosage: EVERY 4-6 HOURS AS NEEDED
     Route: 055
     Dates: start: 20151217
  21. QNASL [Concomitant]
     Active Substance: BECLOMETHASONE DIPROPIONATE
     Route: 045
     Dates: start: 20160517

REACTIONS (7)
  - Diarrhoea [Not Recovered/Not Resolved]
  - Wheezing [Unknown]
  - Paraesthesia [Unknown]
  - Arthralgia [Unknown]
  - Hypoaesthesia [Unknown]
  - Cough [Unknown]
  - Dyspnoea [Unknown]

NARRATIVE: CASE EVENT DATE: 20171016
